FAERS Safety Report 8007262-2 (Version None)
Quarter: 2011Q4

REPORT INFORMATION
  Report Type: 
  Country: None (occurrence: None)
  Receive Date: 20111227
  Receipt Date: 20111216
  Transmission Date: 20120403
  Serious: Yes (Hospitalization)
  Sender: FDA-Public Use
  Company Number: GB-UCBSA-047723

PATIENT
  Age: 5 Year

DRUGS (3)
  1. KEPPRA [Suspect]
     Indication: RETT'S DISORDER
  2. CLOBAZAM [Concomitant]
  3. PHENOBARBITAL TAB [Concomitant]

REACTIONS (3)
  - CONVULSION [None]
  - RESPIRATORY ARREST [None]
  - THERAPEUTIC RESPONSE UNEXPECTED [None]
